FAERS Safety Report 8076402-1 (Version None)
Quarter: 2012Q1

REPORT INFORMATION
  Report Type: 
  Country: None (occurrence: None)
  Receive Date: 20120127
  Receipt Date: 20120127
  Transmission Date: 20120608
  Serious: No
  Sender: FDA-Public Use
  Company Number: None

PATIENT
  Age: 56 Year
  Sex: Female
  Weight: 108.86 kg

DRUGS (1)
  1. DULERA [Suspect]

REACTIONS (1)
  - CONTRAINDICATION TO MEDICAL TREATMENT [None]
